FAERS Safety Report 7865729-1 (Version None)
Quarter: 2011Q4

REPORT INFORMATION
  Report Type: 
  Country: None (occurrence: None)
  Receive Date: 20111028
  Receipt Date: 20110215
  Transmission Date: 20120403
  Serious: No
  Sender: FDA-Public Use
  Company Number: US-GLAXOSMITHKLINE-A0913772A

PATIENT
  Age: 65 Year
  Sex: Female

DRUGS (13)
  1. ALLOPURINOL [Concomitant]
  2. ADVAIR DISKUS 100/50 [Suspect]
     Indication: CHRONIC OBSTRUCTIVE PULMONARY DISEASE
     Dosage: 1PUFF TWICE PER DAY
     Route: 055
     Dates: start: 20070101
  3. THEOPHYLLINE [Concomitant]
  4. METOCLOPRAMIDE [Concomitant]
  5. FEXOFENADINE [Concomitant]
  6. POTASSIUM [Concomitant]
  7. PANTOPRAZOLE [Concomitant]
  8. GLYBURIDE AND METFORMIN HYDROCHLORIDE [Concomitant]
  9. REQUIP [Concomitant]
  10. COMBIVENT [Concomitant]
  11. ALBUTEROL [Concomitant]
  12. CLONAZEPAM [Concomitant]
  13. ATENOLOL / CHLORTHAL [Concomitant]

REACTIONS (3)
  - DYSPNOEA [None]
  - PRODUCT QUALITY ISSUE [None]
  - CHEST DISCOMFORT [None]
